FAERS Safety Report 8233556-1 (Version None)
Quarter: 2012Q1

REPORT INFORMATION
  Report Type: 
  Country: None (occurrence: None)
  Receive Date: 20120326
  Receipt Date: 20120323
  Transmission Date: 20120608
  Serious: No
  Sender: FDA-Public Use
  Company Number: US-BAYER-2012-028759

PATIENT
  Sex: Female
  Weight: 73 kg

DRUGS (7)
  1. BETASERON [Suspect]
     Dosage: 0.3 MG, QOD
     Route: 058
  2. BENICAR [Concomitant]
     Dosage: 20 MG
  3. METFORMIN HCL [Concomitant]
     Dosage: 500 MG
  4. ZOCOR [Concomitant]
     Dosage: 40 MG
  5. CALCIUM +VIT D [Concomitant]
  6. CANASA [Concomitant]
     Dosage: 500 MG
  7. COLAZAL [Concomitant]
     Dosage: 750 MG

REACTIONS (2)
  - INFLUENZA LIKE ILLNESS [None]
  - INJECTION SITE REACTION [None]
